FAERS Safety Report 10033291 (Version 2)
Quarter: 2014Q2

REPORT INFORMATION
  Report Type: Report from Study
  Country: AU (occurrence: AU)
  Receive Date: 20140324
  Receipt Date: 20140419
  Transmission Date: 20141212
  Serious: Yes (Hospitalization, Other)
  Sender: FDA-Public Use
  Company Number: AU-US-EMD SERONO, INC.-7276690

PATIENT
  Age: 40 Year
  Sex: Female

DRUGS (2)
  1. REBIF [Suspect]
     Indication: MULTIPLE SCLEROSIS
     Route: 058
     Dates: start: 2008, end: 20140208
  2. REBIF [Suspect]
     Route: 058
     Dates: start: 20140214

REACTIONS (6)
  - Renal failure [Recovered/Resolved]
  - Sarcoidosis [Unknown]
  - Migraine [Recovered/Resolved]
  - Balance disorder [Recovered/Resolved]
  - Muscle spasms [Unknown]
  - Pain [Recovered/Resolved]
